FAERS Safety Report 24367223 (Version 2)
Quarter: 2024Q3

REPORT INFORMATION
  Report Type: Spontaneous
  Country: US (occurrence: US)
  Receive Date: 20240926
  Receipt Date: 20240930
  Transmission Date: 20241017
  Serious: No
  Sender: BRISTOL MYERS SQUIBB
  Company Number: US-BRISTOL-MYERS SQUIBB COMPANY-2024-151769

PATIENT
  Sex: Female

DRUGS (1)
  1. ZEPOSIA [Suspect]
     Active Substance: OZANIMOD HYDROCHLORIDE
     Indication: Product used for unknown indication
     Dates: start: 2023

REACTIONS (5)
  - Pain in jaw [Unknown]
  - Feeling hot [Unknown]
  - Temporomandibular pain and dysfunction syndrome [Unknown]
  - Ear inflammation [Unknown]
  - Tinnitus [Unknown]

NARRATIVE: CASE EVENT DATE: 20230101
